FAERS Safety Report 10792151 (Version 1)
Quarter: 2015Q1

REPORT INFORMATION
  Report Type: Spontaneous
  Country: US (occurrence: US)
  Receive Date: 20150213
  Receipt Date: 20150213
  Transmission Date: 20150721
  Serious: Yes (Hospitalization, Other)
  Sender: FDA-Public Use
  Company Number: US-ELI_LILLY_AND_COMPANY-US201502000785

PATIENT
  Age: 84 Year
  Sex: Female
  Weight: 45.35 kg

DRUGS (9)
  1. VITAMIN E\VITAMINS [Concomitant]
     Active Substance: .ALPHA.-TOCOPHEROL\VITAMINS
  2. HUMALOG [Suspect]
     Active Substance: INSULIN LISPRO
     Indication: TYPE 1 DIABETES MELLITUS
     Dosage: 6 U, PRN
     Route: 065
     Dates: start: 2010
  3. D VITAMIN NATURE MADE [Concomitant]
     Dosage: UNK, EACH EVENING
  4. LIPITOR [Concomitant]
     Active Substance: ATORVASTATIN CALCIUM
  5. ELIQUIS [Concomitant]
     Active Substance: APIXABAN
  6. VITAMIIN C [Concomitant]
     Active Substance: ASCORBIC ACID
  7. AMLODIPINE [Concomitant]
     Active Substance: AMLODIPINE BESYLATE
  8. VITAMIIN A [Concomitant]
  9. MENADIONE [Concomitant]
     Active Substance: MENADIONE

REACTIONS (7)
  - Muscular weakness [Not Recovered/Not Resolved]
  - Weight decreased [Unknown]
  - Cerebrovascular accident [Recovered/Resolved]
  - Cerebrovascular accident [Recovered/Resolved with Sequelae]
  - Dry eye [Not Recovered/Not Resolved]
  - Incorrect dose administered [Unknown]
  - Visual acuity reduced [Not Recovered/Not Resolved]

NARRATIVE: CASE EVENT DATE: 201407
